FAERS Safety Report 6505206-3 (Version None)
Quarter: 2009Q4

REPORT INFORMATION
  Report Type: 
  Country: None (occurrence: None)
  Receive Date: 20091218
  Receipt Date: 20091214
  Transmission Date: 20100525
  Serious: Yes (Life-Threatening, Hospitalization)
  Sender: FDA-Public Use
  Company Number: PHHY2009FR55217

PATIENT
  Sex: Female

DRUGS (6)
  1. VALSARTAN AND HYDROCHLOROTHIAZIDE [Suspect]
     Dosage: UNK
     Route: 048
     Dates: end: 20091106
  2. FENOFIBRATE [Suspect]
  3. LEVONORGESTREL AND ETHINYL ESTRADIOL [Suspect]
     Dosage: UNK
     Dates: end: 20091106
  4. GINKOR FORT [Suspect]
     Dosage: UNK
     Dates: end: 20091106
  5. AMOXICILLIN [Concomitant]
     Dosage: UNK
     Dates: start: 20091105
  6. SPIFEN [Concomitant]
     Dosage: UNK
     Dates: start: 20091105

REACTIONS (8)
  - ACALCULIA [None]
  - CEREBRAL THROMBOSIS [None]
  - COGNITIVE DISORDER [None]
  - CONFUSIONAL STATE [None]
  - FACIAL PALSY [None]
  - PYRAMIDAL TRACT SYNDROME [None]
  - SPEECH DISORDER [None]
  - THROMBOLYSIS [None]
